FAERS Safety Report 4665909-2 (Version None)
Quarter: 2005Q2

REPORT INFORMATION
  Report Type: 
  Country: None (occurrence: None)
  Receive Date: 20050516
  Receipt Date: 20050516
  Transmission Date: 20051028
  Serious: Yes (Death, Hospitalization)
  Sender: FDA-Public Use
  Company Number: None

PATIENT
  Sex: Female
  Weight: 106.6 kg

DRUGS (4)
  1. DOXORUBICIN [Suspect]
     Dates: start: 20050119, end: 20050331
  2. CYCLOPHOSPHAMIDE [Suspect]
     Dates: start: 20050119, end: 20050331
  3. PEGFILGRASTIN [Suspect]
     Dates: start: 20050120, end: 20050401
  4. PACLITAXEL [Suspect]
     Dates: start: 20050415, end: 20050505

REACTIONS (10)
  - ANXIETY [None]
  - BLOOD PRESSURE DECREASED [None]
  - CARDIAC DISORDER [None]
  - DYSKINESIA [None]
  - DYSPNOEA [None]
  - HYPOKINESIA [None]
  - MYOCARDITIS [None]
  - NAUSEA [None]
  - SHOCK [None]
  - VENTRICULAR DYSFUNCTION [None]
